FAERS Safety Report 6087810-2 (Version None)
Quarter: 2009Q1

REPORT INFORMATION
  Report Type: 
  Country: None (occurrence: None)
  Receive Date: 20090223
  Receipt Date: 20090217
  Transmission Date: 20090719
  Serious: No
  Sender: FDA-Public Use
  Company Number: US-B.I. PHARMACEUTICALS,INC./RIDGEFIELD-2009-BP-02026BP

PATIENT
  Sex: Female

DRUGS (7)
  1. SPIRIVA [Suspect]
     Indication: CHRONIC OBSTRUCTIVE PULMONARY DISEASE
     Dosage: 18MCG
     Route: 055
     Dates: start: 20070201
  2. EXFORGE [Concomitant]
     Indication: HYPERTENSION
  3. BYSTOLIC [Concomitant]
     Indication: HYPERTENSION
  4. ALLOPURINOL [Concomitant]
     Indication: GOUT
  5. SINGULAIR [Concomitant]
     Indication: HYPERSENSITIVITY
  6. FLONASE [Concomitant]
     Indication: RHINITIS ALLERGIC
  7. AMBIEN [Concomitant]
     Indication: INSOMNIA

REACTIONS (3)
  - DRY MOUTH [None]
  - GLOSSODYNIA [None]
  - ORAL CANDIDIASIS [None]
